FAERS Safety Report 4387790-1 (Version None)
Quarter: 2004Q2

REPORT INFORMATION
  Report Type: 
  Country: None (occurrence: None)
  Receive Date: 20040630
  Receipt Date: 20040622
  Transmission Date: 20050107
  Serious: Yes (Other)
  Sender: FDA-Public Use
  Company Number: BR-GLAXOSMITHKLINE-A0516554A

PATIENT
  Age: 42 Year
  Sex: Female
  Weight: 62 kg

DRUGS (3)
  1. WELLBUTRIN [Suspect]
     Indication: DRUG USE FOR UNKNOWN INDICATION
     Dosage: 150MG UNKNOWN
     Route: 048
     Dates: start: 20040607, end: 20040622
  2. SERTRALINE HCL [Concomitant]
     Dosage: 25MG UNKNOWN
     Route: 065
  3. CLONAZEPAM [Concomitant]
     Dosage: 1MG UNKNOWN
     Route: 065

REACTIONS (1)
  - VAGINAL HAEMORRHAGE [None]
